FAERS Safety Report 5471847-8 (Version None)
Quarter: 2007Q3

REPORT INFORMATION
  Report Type: 
  Country: None (occurrence: None)
  Receive Date: 20070928
  Receipt Date: 20070626
  Transmission Date: 20080115
  Serious: No
  Sender: FDA-Public Use
  Company Number: US-BRISTOL-MYERS SQUIBB COMPANY-13826458

PATIENT
  Age: 65 Year
  Sex: Male
  Weight: 82 kg

DRUGS (11)
  1. DEFINITY [Suspect]
     Dates: start: 20070626
  2. METFORMIN [Concomitant]
  3. BYETTA [Concomitant]
  4. PLAVIX [Concomitant]
  5. LIPITOR [Concomitant]
  6. BENICAR [Concomitant]
  7. ATENOLOL [Concomitant]
  8. ASPIRIN [Concomitant]
  9. NITROQUICK [Concomitant]
  10. VIAGRA [Concomitant]
  11. HYDROXYZINE [Concomitant]

REACTIONS (1)
  - BACK PAIN [None]
